FAERS Safety Report 17366184 (Version 1)
Quarter: 2020Q1

REPORT INFORMATION
  Report Type: Spontaneous
  Country: BR (occurrence: BR)
  Receive Date: 20200204
  Receipt Date: 20200204
  Transmission Date: 20200409
  Serious: Yes (Hospitalization)
  Sender: FDA-Public Use
  Company Number: BR-GLAXOSMITHKLINE-BR2020AMR016317

PATIENT
  Age: 15 Year
  Sex: Female

DRUGS (1)
  1. ZINNAT [Suspect]
     Active Substance: CEFUROXIME
     Indication: PNEUMONIA
     Dosage: 10 ML, BID

REACTIONS (5)
  - Product preparation issue [Unknown]
  - Product label confusion [Unknown]
  - Product storage error [Unknown]
  - Hospitalisation [Unknown]
  - Poor quality product administered [Unknown]
